FAERS Safety Report 8216671-8 (Version None)
Quarter: 2012Q1

REPORT INFORMATION
  Report Type: 
  Country: None (occurrence: None)
  Receive Date: 20120316
  Receipt Date: 20120302
  Transmission Date: 20120608
  Serious: Yes (Hospitalization, Other)
  Sender: FDA-Public Use
  Company Number: FR-BRISTOL-MYERS SQUIBB COMPANY-16443723

PATIENT
  Age: 59 Year
  Sex: Male

DRUGS (2)
  1. FLUDROCORTISONE ACETATE [Suspect]
     Indication: ADRENOCORTICAL CARCINOMA
     Dosage: 1DF:50MCG; STOPPED AND RESTARTED ON 7AUG11
     Route: 048
     Dates: start: 20100901
  2. LYSODREN [Suspect]
     Indication: ADRENOCORTICAL CARCINOMA
     Dosage: STOPPED AND RESTARTED ON 9AUG11; STOPPED ON 11-NOV-2011
     Route: 048
     Dates: start: 20100901, end: 20111111

REACTIONS (4)
  - SHOCK HAEMORRHAGIC [None]
  - COLITIS [None]
  - ADRENAL INSUFFICIENCY [None]
  - SEPTIC SHOCK [None]
